FAERS Safety Report 4776023-X (Version None)
Quarter: 2005Q3

REPORT INFORMATION
  Report Type: 
  Country: None (occurrence: None)
  Receive Date: 20050922
  Receipt Date: 20050701
  Transmission Date: 20060218
  Serious: Yes (Hospitalization)
  Sender: FDA-Public Use
  Company Number: FR-ROCHE-409793

PATIENT
  Age: 60 Year
  Sex: Male
  Weight: 70 kg

DRUGS (4)
  1. PEGASYS [Suspect]
     Indication: HEPATITIS C
     Route: 058
     Dates: start: 20040901, end: 20050630
  2. COPEGUS [Suspect]
     Indication: HEPATITIS C
     Route: 048
     Dates: start: 20040901, end: 20050630
  3. NEXIUM [Concomitant]
     Indication: GASTRODUODENAL ULCER
     Route: 048
  4. TAREG [Concomitant]
     Indication: HYPERTENSION
     Route: 048
     Dates: end: 20050616

REACTIONS (1)
  - ANAEMIA HAEMOLYTIC AUTOIMMUNE [None]
